FAERS Safety Report 12797931 (Version 3)
Quarter: 2016Q4

REPORT INFORMATION
  Report Type: Spontaneous
  Country: US (occurrence: US)
  Receive Date: 20160930
  Receipt Date: 20161028
  Transmission Date: 20170207
  Serious: Yes (Other)
  Sender: FDA-Public Use
  Company Number: US-GLAXOSMITHKLINE-US2016141678

PATIENT
  Sex: Male

DRUGS (3)
  1. ALOE VERA JUICE [Concomitant]
  2. ADVAIR DISKUS [Suspect]
     Active Substance: FLUTICASONE PROPIONATE\SALMETEROL XINAFOATE
     Indication: CHRONIC OBSTRUCTIVE PULMONARY DISEASE
     Dosage: 1 PUFF(S), BID
  3. ECHINACEA [Concomitant]
     Active Substance: ECHINACEA, UNSPECIFIED

REACTIONS (5)
  - Condition aggravated [Unknown]
  - Dizziness [Not Recovered/Not Resolved]
  - Product quality issue [Unknown]
  - Neoplasm malignant [Not Recovered/Not Resolved]
  - Overdose [Unknown]
